FAERS Safety Report 8293956 (Version 15)
Quarter: 2013Q3

REPORT INFORMATION
  Report Type: Spontaneous
  Country: US (occurrence: US)
  Receive Date: 20111216
  Receipt Date: 20130717
  Transmission Date: 20140515
  Serious: Yes (Hospitalization, Disabling, Other)
  Sender: FDA-Public Use
  Company Number: US-JNJFOC-20111203664

PATIENT
  Sex: Male
  Weight: 99.79 kg

DRUGS (19)
  1. RISPERDAL [Suspect]
     Indication: BIPOLAR I DISORDER
     Route: 048
     Dates: start: 1999
  2. RISPERDAL [Suspect]
     Indication: BIPOLAR I DISORDER
     Route: 048
     Dates: end: 2009
  3. RISPERDAL [Suspect]
     Indication: BIPOLAR I DISORDER
     Route: 048
     Dates: end: 2009
  4. RISPERDAL [Suspect]
     Indication: BIPOLAR I DISORDER
     Route: 048
     Dates: end: 2010
  5. RISPERDAL [Suspect]
     Indication: BIPOLAR I DISORDER
     Route: 048
     Dates: start: 2003, end: 2007
  6. RISPERIDONE [Suspect]
     Indication: BIPOLAR I DISORDER
     Route: 048
  7. RANITIDINE [Suspect]
     Indication: GASTRIC DISORDER
     Route: 065
  8. ABILIFY [Suspect]
     Indication: BIPOLAR DISORDER
     Dosage: ONCE IN THE MORNING
     Route: 048
     Dates: start: 2010, end: 2010
  9. XANAX [Suspect]
     Indication: TARDIVE DYSKINESIA
     Dosage: AT BEDTIME AS NEEDED
     Route: 048
     Dates: start: 2011
  10. LITHIUM CARBONATE [Concomitant]
     Indication: BIPOLAR DISORDER
     Dosage: 900MG AND??600MG/TABLET/300MG/3 IN AM??AND 2 IN PM
     Route: 048
     Dates: start: 2009
  11. ACTOS [Concomitant]
     Indication: DIABETES MELLITUS
     Route: 048
  12. CYMBALTA [Concomitant]
     Indication: BIPOLAR DISORDER
     Route: 065
  13. COGENTIN [Concomitant]
     Indication: BIPOLAR DISORDER
     Route: 065
     Dates: start: 2010, end: 2011
  14. WELLBUTRIN [Concomitant]
     Indication: BIPOLAR DISORDER
     Dosage: IN THE MORNING
     Route: 065
     Dates: start: 2011, end: 2012
  15. PRINIVIL [Concomitant]
     Route: 048
  16. ZESTRIL [Concomitant]
     Route: 048
  17. GLUCOPHAGE [Concomitant]
     Dosage: WITH MEALS
     Route: 048
  18. NOVOLOG MIX [Concomitant]
     Dosage: WITH MEALS
     Route: 065
  19. KLONOPIN [Concomitant]
     Dosage: WITH MEALS
     Route: 048

REACTIONS (37)
  - Drug ineffective [Unknown]
  - Mental impairment [Recovered/Resolved]
  - Tardive dyskinesia [Not Recovered/Not Resolved]
  - Feeling abnormal [Recovered/Resolved]
  - Diabetes mellitus [Not Recovered/Not Resolved]
  - Weight increased [Recovering/Resolving]
  - Feeling abnormal [Not Recovered/Not Resolved]
  - Coma [Recovered/Resolved]
  - Suicide attempt [Recovered/Resolved]
  - Mental disability [Not Recovered/Not Resolved]
  - Myocardial infarction [Unknown]
  - Hypertension [Unknown]
  - Overdose [Unknown]
  - Pneumonia [Recovered/Resolved]
  - Vascular occlusion [Unknown]
  - Brain injury [Not Recovered/Not Resolved]
  - Erectile dysfunction [Recovered/Resolved]
  - Parkinson^s disease [Unknown]
  - Fragile X syndrome [Unknown]
  - Suicidal ideation [Recovered/Resolved]
  - Headache [Unknown]
  - Sexual dysfunction [Unknown]
  - Eating disorder [Not Recovered/Not Resolved]
  - Gynaecomastia [Unknown]
  - Glossodynia [Not Recovered/Not Resolved]
  - Abnormal loss of weight [Recovered/Resolved]
  - Intentional drug misuse [Recovered/Resolved]
  - Breast mass [Recovered/Resolved]
  - Initial insomnia [Not Recovered/Not Resolved]
  - Treatment noncompliance [Unknown]
  - Gastric disorder [Recovered/Resolved]
  - Vomiting [Recovered/Resolved]
  - Aspiration [Recovered/Resolved]
  - Dysstasia [Recovered/Resolved]
  - Staring [Recovered/Resolved]
  - Nasopharyngitis [Not Recovered/Not Resolved]
  - Pregnancy of partner [Unknown]
